FAERS Safety Report 5491670-8 (Version None)
Quarter: 2007Q4

REPORT INFORMATION
  Report Type: 
  Country: None (occurrence: None)
  Receive Date: 20071022
  Receipt Date: 20071022
  Transmission Date: 20080405
  Serious: Yes (Hospitalization)
  Sender: FDA-Public Use
  Company Number: None

PATIENT
  Sex: Female
  Weight: 91.95 kg

DRUGS (4)
  1. MIFEPRISTONE [Suspect]
     Dosage: 5400 MG
  2. DURAGESIC-100 [Concomitant]
  3. REGLAN [Concomitant]
  4. SENNAKOT [Concomitant]

REACTIONS (8)
  - ANOREXIA [None]
  - CONSTIPATION [None]
  - DEHYDRATION [None]
  - HYPOXIA [None]
  - NAUSEA [None]
  - PULMONARY EMBOLISM [None]
  - SPLENIC INFARCTION [None]
  - VOMITING [None]
